FAERS Safety Report 12329270 (Version 3)
Quarter: 2017Q1

REPORT INFORMATION
  Report Type: Spontaneous
  Country: US (occurrence: US)
  Receive Date: 20160503
  Receipt Date: 20170323
  Transmission Date: 20170428
  Serious: Yes (Other)
  Sender: FDA-Public Use
  Company Number: US-AMGEN-USASP2016014508

PATIENT
  Age: 70 Year
  Sex: Female

DRUGS (1)
  1. IMLYGIC [Suspect]
     Active Substance: TALIMOGENE LAHERPAREPVEC
     Indication: NEOPLASM
     Dosage: UNK (108 PFU)
     Route: 065

REACTIONS (3)
  - Nausea [Unknown]
  - Underdose [Unknown]
  - Metastasis [Unknown]

NARRATIVE: CASE EVENT DATE: 2016
